FAERS Safety Report 6582433-0 (Version None)
Quarter: 2010Q1

REPORT INFORMATION
  Report Type: 
  Country: None (occurrence: None)
  Receive Date: 20100216
  Receipt Date: 20100203
  Transmission Date: 20100710
  Serious: Yes (Other)
  Sender: FDA-Public Use
  Company Number: PHHY2010FR02890

PATIENT
  Sex: Female

DRUGS (1)
  1. AFINITOR [Suspect]
     Indication: RENAL CANCER METASTATIC
     Dosage: 10 MG DAILY
     Route: 048
     Dates: start: 20090915

REACTIONS (4)
  - COUGH [None]
  - DYSPNOEA [None]
  - LUNG DISORDER [None]
  - PYREXIA [None]
